FAERS Safety Report 4731070-9 (Version None)
Quarter: 2005Q3

REPORT INFORMATION
  Report Type: 
  Country: None (occurrence: None)
  Receive Date: 20050726
  Receipt Date: 20050422
  Transmission Date: 20060218
  Serious: Yes (Hospitalization)
  Sender: FDA-Public Use
  Company Number: 05FRA0112

PATIENT
  Age: 66 Year
  Sex: Male

DRUGS (6)
  1. AGGRASTAT [Suspect]
     Indication: ACUTE CORONARY SYNDROME
     Dates: start: 20041203, end: 20041204
  2. ALLOPURINOL [Concomitant]
  3. ASPIRIN [Concomitant]
  4. ATENOLOL [Concomitant]
  5. ATORVASTATIN CALCIUM [Concomitant]
  6. REPAGLINIDE (REPAGLINIDE) [Concomitant]

REACTIONS (1)
  - THROMBOCYTOPENIA [None]
